FAERS Safety Report 6204614-8 (Version None)
Quarter: 2009Q2

REPORT INFORMATION
  Report Type: 
  Country: None (occurrence: None)
  Receive Date: 20090527
  Receipt Date: 20090514
  Transmission Date: 20091009
  Serious: Yes (Hospitalization)
  Sender: FDA-Public Use
  Company Number: CH-PFIZER INC-2009213535

PATIENT
  Age: 83 Year

DRUGS (14)
  1. NEURONTIN [Suspect]
     Indication: PAIN
     Dosage: 800 MG, 3X/DAY
     Route: 048
     Dates: end: 20090310
  2. RIVOTRIL [Interacting]
     Dosage: 0.5 MG, 3X/DAY
     Route: 048
  3. HALDOL [Interacting]
     Dosage: 1 MG, 3X/DAY
     Route: 048
     Dates: start: 20090307, end: 20090308
  4. HALDOL [Interacting]
     Dosage: 5 MG, UNK
     Route: 058
     Dates: start: 20090309, end: 20090309
  5. VANCOMYCIN [Concomitant]
     Dosage: 500 MG, 2X/DAY
     Route: 042
     Dates: start: 20090310
  6. TIENAM [Concomitant]
     Dosage: 500 MG, 3X/DAY
     Route: 042
     Dates: start: 20090308, end: 20090310
  7. INSULIN [Concomitant]
  8. LIQUAEMIN INJ [Concomitant]
     Dosage: 5000 IU, 2X/DAY
     Route: 058
     Dates: start: 20090308, end: 20090310
  9. ASPIRIN [Concomitant]
     Dosage: 100 MG, 1X/DAY
     Route: 048
  10. COVERSUM [Concomitant]
     Dosage: 2 MG, 1X/DAY
     Route: 048
  11. NEXIUM [Concomitant]
     Dosage: 40 MG, 1X/DAY
     Route: 048
  12. AKINETON [Concomitant]
     Dosage: 1 MG, 1X/DAY
     Route: 048
  13. TIAPRIDAL [Concomitant]
     Dosage: 300 MG, 2X/DAY
     Route: 048
  14. NITRODERM [Concomitant]
     Dosage: 10 MG, 1X/DAY
     Route: 003
     Dates: start: 20090308

REACTIONS (1)
  - ALTERED STATE OF CONSCIOUSNESS [None]
